FAERS Safety Report 25752252 (Version 3)
Quarter: 2025Q3

REPORT INFORMATION
  Report Type: Spontaneous
  Country: US (occurrence: US)
  Receive Date: 20250902
  Receipt Date: 20250912
  Transmission Date: 20251020
  Serious: Yes (Death, Life-Threatening, Hospitalization, Disabling, Other)
  Sender: NOVARTIS
  Company Number: US-002147023-NVSC2025US137141

PATIENT
  Age: 89 Year
  Sex: Male
  Weight: 90.72 kg

DRUGS (1)
  1. ENTRESTO [Suspect]
     Active Substance: SACUBITRIL\VALSARTAN
     Indication: Diastolic dysfunction
     Dosage: 49.51 MG, BID (24/26 PRIOR 1 DAILY, 49/51 TWICE DAILY, 49/51 MORNING AND NIGHT)
     Route: 050
     Dates: start: 202403, end: 202502

REACTIONS (4)
  - Liver disorder [Fatal]
  - Ascites [Fatal]
  - Anaemia [Fatal]
  - Cardiac arrest [Fatal]

NARRATIVE: CASE EVENT DATE: 20250804
